FAERS Safety Report 9689397 (Version 2)
Quarter: 2014Q2

REPORT INFORMATION
  Report Type: Spontaneous
  Country: US (occurrence: US)
  Receive Date: 20131114
  Receipt Date: 20140528
  Transmission Date: 20141212
  Serious: Yes (Other)
  Sender: FDA-Public Use
  Company Number: CHPA2013US017018

PATIENT
  Age: 87 Year
  Sex: Female

DRUGS (1)
  1. ASCRIPTIN BUFFERED REG STRENGTH TABLETS [Suspect]
     Dosage: 1 DF, QD
     Route: 048

REACTIONS (4)
  - Hypertension [Not Recovered/Not Resolved]
  - Underdose [Unknown]
  - Incorrect drug administration duration [Unknown]
  - Headache [Not Recovered/Not Resolved]
